FAERS Safety Report 7649062-9 (Version None)
Quarter: 2011Q3

REPORT INFORMATION
  Report Type: 
  Country: None (occurrence: None)
  Receive Date: 20110726
  Receipt Date: 20110713
  Transmission Date: 20111222
  Serious: Yes (Life-Threatening)
  Sender: FDA-Public Use
  Company Number: FK201101375

PATIENT
  Age: 91 Year
  Sex: Female
  Weight: 44 kg

DRUGS (1)
  1. MANNITOL [Suspect]
     Indication: BOWEL PREPARATION

REACTIONS (1)
  - LARGE INTESTINE PERFORATION [None]
